FAERS Safety Report 15500689 (Version 1)
Quarter: 2018Q4

REPORT INFORMATION
  Report Type: Spontaneous
  Country: IR (occurrence: IR)
  Receive Date: 20181015
  Receipt Date: 20181015
  Transmission Date: 20190205
  Serious: Yes (Other)
  Sender: FDA-Public Use
  Company Number: IR-IMPAX LABORATORIES, INC-2018-IPXL-03368

PATIENT
  Age: 59 Year
  Sex: Male

DRUGS (1)
  1. DESMOPRESSIN ACETATE IR [Suspect]
     Active Substance: DESMOPRESSIN ACETATE
     Indication: DIABETES INSIPIDUS
     Dosage: SPRAY, UNK
     Route: 045

REACTIONS (1)
  - Chorioretinopathy [Unknown]
